FAERS Safety Report 25947556 (Version 1)
Quarter: 2025Q4

REPORT INFORMATION
  Report Type: Spontaneous
  Country: US (occurrence: None)
  Receive Date: 20251021
  Receipt Date: 20251021
  Transmission Date: 20260118
  Serious: Yes (Hospitalization)
  Sender: FDA-CTU
  Company Number: None

PATIENT
  Sex: Female

DRUGS (11)
  1. VYNDAMAX [Suspect]
     Active Substance: TAFAMIDIS
     Indication: Amyloidosis
     Dosage: FREQUENCY : DAILY;?
     Route: 048
     Dates: start: 20250124
  2. ALBUTEROL SULFATE [Concomitant]
     Active Substance: ALBUTEROL SULFATE
  3. AZO CRNBERRYTAB [Concomitant]
  4. BENZONATATE CAP 200MG [Concomitant]
  5. EZETIM/SIMVA TAB 10-20MG [Concomitant]
  6. LEVOTHYROXIN TAB 75MCG [Concomitant]
  7. PAROXETINE TAB 20MG [Concomitant]
  8. PREDNISONE [Concomitant]
     Active Substance: PREDNISONE
  9. SPIRONOLACT TAB 25MG [Concomitant]
  10. TORSEMIDE TAB 10MG [Concomitant]
  11. TYLENOL TAB 325MG [Concomitant]

REACTIONS (1)
  - Rhinovirus infection [None]
